FAERS Safety Report 23381325 (Version 3)
Quarter: 2024Q3

REPORT INFORMATION
  Report Type: Spontaneous
  Country: TW (occurrence: TW)
  Receive Date: 20240109
  Receipt Date: 20240704
  Transmission Date: 20241016
  Serious: Yes (Hospitalization)
  Sender: NOVO NORDISK
  Company Number: TW-NOVOPROD-1158546

PATIENT
  Age: 39 Year
  Sex: Male
  Weight: 50 kg

DRUGS (1)
  1. COAGULATION FACTOR IX (RECOMBINANT), GLYCOPEGYLATED [Suspect]
     Active Substance: COAGULATION FACTOR IX (RECOMBINANT), GLYCOPEGYLATED
     Indication: Factor IX deficiency
     Dosage: 2000 IU, QW
     Route: 042
     Dates: start: 20231229

REACTIONS (7)
  - Cold sweat [Recovering/Resolving]
  - Hypotension [Recovering/Resolving]
  - Nausea [Recovering/Resolving]
  - Vomiting [Recovering/Resolving]
  - Allergic reaction to excipient [Recovering/Resolving]
  - Rash [Recovering/Resolving]
  - Abdominal pain [Unknown]

NARRATIVE: CASE EVENT DATE: 20231229
